FAERS Safety Report 16010860 (Version 1)
Quarter: 2019Q1

REPORT INFORMATION
  Report Type: Spontaneous
  Country: US (occurrence: US)
  Receive Date: 20190227
  Receipt Date: 20190227
  Transmission Date: 20190418
  Serious: Yes (Hospitalization, Other)
  Sender: FDA-Public Use
  Company Number: US-009507513-0802USA03055

PATIENT
  Age: 44 Year
  Sex: Male
  Weight: 90 kg

DRUGS (8)
  1. CUBICIN [Suspect]
     Active Substance: DAPTOMYCIN
     Dosage: 600 MG, QOD
     Route: 042
  2. CUBICIN [Suspect]
     Active Substance: DAPTOMYCIN
     Indication: ARTHRITIS BACTERIAL
     Dosage: 540 MG/KG, Q48H (QOD)
     Route: 042
     Dates: start: 20040216, end: 20040329
  3. CUBICIN [Suspect]
     Active Substance: DAPTOMYCIN
     Dosage: 6 MILLIGRAM/KILOGRAM , Q48H
  4. CUBICIN [Suspect]
     Active Substance: DAPTOMYCIN
     Dosage: UNK
     Dates: end: 20050912
  5. ZYVOX [Concomitant]
     Active Substance: LINEZOLID
     Indication: UROSEPSIS
     Dosage: 600 MILLIGRAM, Q12H
     Dates: start: 2003, end: 2003
  6. CUBICIN [Suspect]
     Active Substance: DAPTOMYCIN
     Indication: STAPHYLOCOCCAL INFECTION
     Dosage: 500 MG, QD (Q24H)
     Route: 042
     Dates: start: 20040422, end: 20040603
  7. VANCOMYCIN [Concomitant]
     Active Substance: VANCOMYCIN
  8. CUBICIN [Suspect]
     Active Substance: DAPTOMYCIN
     Dosage: 600 MG, Q24H (QD)
     Route: 042

REACTIONS (9)
  - Deep vein thrombosis [Recovered/Resolved]
  - Septic shock [Recovered/Resolved]
  - Renal failure [Recovered/Resolved]
  - White blood cell count increased [Recovered/Resolved]
  - Myalgia [Recovered/Resolved]
  - Pain in extremity [Recovered/Resolved]
  - Osteomyelitis [Recovered/Resolved]
  - Blood creatine phosphokinase increased [Recovered/Resolved]
  - Respiratory failure [Recovered/Resolved]

NARRATIVE: CASE EVENT DATE: 2004
